FAERS Safety Report 19201664 (Version 5)
Quarter: 2021Q4

REPORT INFORMATION
  Report Type: Report from Study
  Country: IT (occurrence: IT)
  Receive Date: 20210430
  Receipt Date: 20211004
  Transmission Date: 20220303
  Serious: Yes (Life-Threatening, Other)
  Sender: FDA-Public Use
  Company Number: IT-JNJFOC-20210439604

PATIENT
  Sex: Female
  Weight: 51 kg

DRUGS (18)
  1. MACITENTAN [Suspect]
     Active Substance: MACITENTAN
     Indication: Pulmonary arterial hypertension
     Route: 048
     Dates: start: 20201110
  2. SELEXIPAG [Suspect]
     Active Substance: SELEXIPAG
     Indication: Pulmonary arterial hypertension
     Route: 048
     Dates: start: 20210301
  3. SELEXIPAG [Suspect]
     Active Substance: SELEXIPAG
     Route: 048
     Dates: start: 20210407, end: 20210410
  4. SELEXIPAG [Suspect]
     Active Substance: SELEXIPAG
     Route: 048
     Dates: start: 20210422
  5. SELEXIPAG [Suspect]
     Active Substance: SELEXIPAG
     Route: 048
     Dates: start: 20210513, end: 20210614
  6. SELEXIPAG [Suspect]
     Active Substance: SELEXIPAG
     Route: 048
     Dates: start: 20210614
  7. TADALAFIL [Concomitant]
     Active Substance: TADALAFIL
     Route: 048
     Dates: start: 20201207
  8. TADALAFIL [Concomitant]
     Active Substance: TADALAFIL
     Route: 048
     Dates: start: 20201110
  9. ASPIRIN [Concomitant]
     Active Substance: ASPIRIN
     Indication: Cerebrovascular accident
     Dates: start: 202009, end: 20210415
  10. AZATHIOPRINE [Concomitant]
     Active Substance: AZATHIOPRINE
     Indication: Systemic scleroderma
     Dates: start: 202009, end: 20210415
  11. SPIRONOLACTONE [Concomitant]
     Active Substance: SPIRONOLACTONE
     Indication: Cardiac failure
     Route: 048
     Dates: start: 20210121, end: 20210407
  12. SPIRONOLACTONE [Concomitant]
     Active Substance: SPIRONOLACTONE
     Route: 048
     Dates: start: 20210422
  13. RAMIPRIL [Concomitant]
     Active Substance: RAMIPRIL
     Indication: Hypertension
     Route: 048
     Dates: start: 202009, end: 20210407
  14. ALLOPURINOL [Concomitant]
     Active Substance: ALLOPURINOL
     Indication: Hyperuricaemia
     Route: 048
     Dates: start: 20210301
  15. NIFEDIPINE [Concomitant]
     Active Substance: NIFEDIPINE
     Indication: Systemic scleroderma
  16. FUROSEMIDE [Concomitant]
     Active Substance: FUROSEMIDE
     Indication: Tricuspid valve incompetence
     Dates: start: 202009
  17. LEVOTHYROXINE [Concomitant]
     Active Substance: LEVOTHYROXINE
     Indication: Hypothyroidism
     Dates: start: 202009
  18. PANTOPRAZOLE [Concomitant]
     Active Substance: PANTOPRAZOLE
     Indication: Hyperchlorhydria
     Route: 048
     Dates: start: 20210422

REACTIONS (4)
  - Anaemia [Recovered/Resolved]
  - Cytopenia [Not Recovered/Not Resolved]
  - Hypotension [Recovered/Resolved]
  - Nausea [Recovered/Resolved]

NARRATIVE: CASE EVENT DATE: 20210310
